FAERS Safety Report 7691871-4 (Version None)
Quarter: 2011Q3

REPORT INFORMATION
  Report Type: 
  Country: None (occurrence: None)
  Receive Date: 20110818
  Receipt Date: 20110811
  Transmission Date: 20111222
  Serious: Yes (Disabling, Other)
  Sender: FDA-Public Use
  Company Number: US-BRACCO-003229

PATIENT
  Sex: Female

DRUGS (7)
  1. CONTRAST MEDIA [Suspect]
     Indication: NUCLEAR MAGNETIC RESONANCE IMAGING
     Dates: start: 20061122, end: 20061122
  2. PROHANCE [Suspect]
     Indication: DIAGNOSTIC PROCEDURE
  3. OMNISCAN [Suspect]
     Indication: NUCLEAR MAGNETIC RESONANCE IMAGING BRAIN
     Route: 042
     Dates: start: 20050821, end: 20050821
  4. MAGNEVIST [Suspect]
     Indication: DIAGNOSTIC PROCEDURE
  5. CONTRAST MEDIA [Suspect]
     Dates: start: 20051109, end: 20051109
  6. OPTIMARK [Suspect]
     Indication: DIAGNOSTIC PROCEDURE
  7. MULTIHANCE [Suspect]
     Indication: DIAGNOSTIC PROCEDURE
     Dates: start: 20061101, end: 20061101

REACTIONS (1)
  - NEPHROGENIC SYSTEMIC FIBROSIS [None]
